FAERS Safety Report 9297933 (Version 3)
Quarter: 2013Q3

REPORT INFORMATION
  Report Type: Spontaneous
  Country: US (occurrence: US)
  Receive Date: 20130520
  Receipt Date: 20130809
  Transmission Date: 20140515
  Serious: Yes (Hospitalization, Other)
  Sender: FDA-Public Use
  Company Number: US-PFIZER INC-2013150099

PATIENT
  Age: 66 Year
  Sex: Female
  Weight: 60.77 kg

DRUGS (17)
  1. INLYTA [Suspect]
     Indication: METASTATIC RENAL CELL CARCINOMA
     Dosage: 5 MG, 2X/DAY
     Route: 048
     Dates: start: 20130419, end: 201304
  2. NORVASC [Concomitant]
     Dosage: 5 MG 1 TABLET ONCE A DAY
  3. PROAIR HFA [Concomitant]
     Dosage: 2 PUFFS ONCE A DAY (108 (90 BASE) MCG/ACT)
     Route: 055
  4. LOSARTAN POTASSIUM [Concomitant]
     Dosage: 100 MG, 1 TABLET ONCE A DAY
  5. LEVETIRACETAM [Concomitant]
     Dosage: 500MG 1 TABLET EVERY 12 HOURS
  6. LEVETIRACETAM [Concomitant]
     Dosage: 450 MG, 2X/DAY (1 TABLET EVERY 12 HRS)
  7. TYLENOL [Concomitant]
     Dosage: UNK
  8. ZOFRAN [Concomitant]
     Dosage: UNK
  9. ATACAND [Concomitant]
     Dosage: UNK
  10. COLACE [Concomitant]
     Dosage: 100 MG, 1 CAPSULE, 2 TIMES A DAY
     Route: 048
  11. ATIVAN [Concomitant]
     Dosage: 2 MG, 1 ML IV PUSH, ONCE, AS NEEDED
     Route: 042
  12. SODIUM CHLORIDE [Concomitant]
     Dosage: 0.9% 1,000 ML: 30 ML/HR
     Route: 042
     Dates: end: 20130505
  13. ACYCLOVIR [Concomitant]
     Dosage: 620 MG, 12.4 ML 250 ML/HR, PIGGYBACK, EVERY 8 HR
     Route: 042
  14. ALBUTEROL [Concomitant]
     Dosage: 180 MCG, 2 PUFF, INHALATION. EVERY 6 HR
     Route: 055
  15. CODEINE SULFATE [Concomitant]
     Indication: HEADACHE
     Dosage: 30 MG, 2 TABLETS, ORAL, EVERY 4 HOUR, PRN
  16. PNEUMOCOCCAL 23-POLYVALENT VACCINE [Concomitant]
     Dosage: 0.5 ML, UNK
     Route: 030
  17. LOSARTAN [Concomitant]
     Dosage: 100 MG, 1X/DAY
     Route: 048

REACTIONS (7)
  - Convulsion [Recovering/Resolving]
  - Grand mal convulsion [Recovering/Resolving]
  - Posterior reversible encephalopathy syndrome [Recovering/Resolving]
  - Dyspnoea [Recovered/Resolved]
  - Transaminases increased [Recovering/Resolving]
  - Cough [Recovering/Resolving]
  - Bronchitis [Recovering/Resolving]
